FAERS Safety Report 17070162 (Version 1)
Quarter: 2019Q4

REPORT INFORMATION
  Report Type: Other
  Country: DE (occurrence: DE)
  Receive Date: 20191125
  Receipt Date: 20191125
  Transmission Date: 20200122
  Serious: No
  Sender: FDA-Public Use
  Company Number: DE-LUPIN PHARMACEUTICALS INC.-2019-06700

PATIENT
  Age: 56 Year
  Sex: Female
  Weight: 95 kg

DRUGS (3)
  1. SIMVASTATIN. [Suspect]
     Active Substance: SIMVASTATIN
     Indication: ACUTE MYOCARDIAL INFARCTION
     Dosage: UNK (20-40 MG)
     Route: 065
     Dates: start: 201703, end: 201804
  2. ATORVASTATIN CALCIUM. [Suspect]
     Active Substance: ATORVASTATIN CALCIUM
     Indication: PRODUCT USED FOR UNKNOWN INDICATION
     Dosage: 20 MILLIGRAM, UNK
     Route: 065
     Dates: start: 201903, end: 201909
  3. ROSUVASTATIN. [Suspect]
     Active Substance: ROSUVASTATIN
     Indication: PRODUCT USED FOR UNKNOWN INDICATION
     Dosage: 5 MILLIGRAM, UNK
     Route: 065
     Dates: start: 201909

REACTIONS (1)
  - Myalgia [Unknown]
